FAERS Safety Report 20845843 (Version 2)
Quarter: 2022Q2

REPORT INFORMATION
  Report Type: Report from Study
  Country: EG (occurrence: EG)
  Receive Date: 20220518
  Receipt Date: 20220520
  Transmission Date: 20220721
  Serious: Yes (Death, Hospitalization)
  Sender: FDA-Public Use
  Company Number: EG-002147023-NVSC2022EG106014

PATIENT

DRUGS (3)
  1. RUXOLITINIB [Suspect]
     Active Substance: RUXOLITINIB
     Indication: Bone marrow transplant
     Dosage: ONE TAB IN THE MORNING AND 0.5 TABLET AT NIGHT PER DAY
     Route: 048
     Dates: start: 20220223, end: 20220313
  2. CYCLOSPORINE [Concomitant]
     Active Substance: CYCLOSPORINE
     Indication: Bone marrow transplant
     Dosage: 75 MG, BID (75 MG IN MORNING AND 75 MG AT NIGHT )(STARTED 6 YEARS AGO)
     Route: 048
  3. CORTISONE [Concomitant]
     Active Substance: CORTISONE
     Indication: Bone marrow transplant
     Dosage: 15 MG, QD (STARTED 6 YEARS AGO)
     Route: 048

REACTIONS (11)
  - Blood potassium decreased [Not Recovered/Not Resolved]
  - Blood sodium decreased [Recovered/Resolved with Sequelae]
  - Bone marrow transplant rejection [Fatal]
  - Condition aggravated [Fatal]
  - Off label use [Recovered/Resolved with Sequelae]
  - Eating disorder [Fatal]
  - Gait inability [Fatal]
  - Asthenia [Fatal]
  - Haemoglobin decreased [Fatal]
  - Platelet count decreased [Fatal]
  - White blood cell count decreased [Fatal]

NARRATIVE: CASE EVENT DATE: 20220223
